FAERS Safety Report 24946538 (Version 1)
Quarter: 2025Q1

REPORT INFORMATION
  Report Type: Spontaneous
  Country: US (occurrence: US)
  Receive Date: 20250210
  Receipt Date: 20250210
  Transmission Date: 20250409
  Serious: Yes (Life-Threatening, Hospitalization, Other)
  Sender: IPCA
  Company Number: US-IPCA LABORATORIES LIMITED-IPC-2025-US-000288

PATIENT

DRUGS (4)
  1. LISINOPRIL [Suspect]
     Active Substance: LISINOPRIL
     Indication: Hypertension
     Route: 065
     Dates: start: 201507
  2. LISINOPRIL [Suspect]
     Active Substance: LISINOPRIL
     Route: 065
  3. HYDROCHLOROTHIAZIDE [Suspect]
     Active Substance: HYDROCHLOROTHIAZIDE
     Indication: Hypertension
     Route: 065
  4. ROSUVASTATIN [Suspect]
     Active Substance: ROSUVASTATIN
     Indication: Product used for unknown indication
     Route: 065

REACTIONS (8)
  - Hyperkalaemia [Recovering/Resolving]
  - Renal artery stenosis [Recovering/Resolving]
  - Acute kidney injury [Recovering/Resolving]
  - Metabolic acidosis [Recovering/Resolving]
  - Leukocytosis [Recovered/Resolved]
  - Hyperphosphataemia [Recovering/Resolving]
  - Blood creatinine increased [Recovering/Resolving]
  - Perinephric oedema [Recovering/Resolving]
